FAERS Safety Report 7232716-6 (Version None)
Quarter: 2011Q1

REPORT INFORMATION
  Report Type: 
  Country: None (occurrence: None)
  Receive Date: 20110119
  Receipt Date: 20110110
  Transmission Date: 20110831
  Serious: Yes (Other)
  Sender: FDA-Public Use
  Company Number: US-PFIZER INC-2010140819

PATIENT
  Sex: Female

DRUGS (4)
  1. FLEXERIL [Concomitant]
     Indication: PAIN
     Dosage: UNK
     Dates: start: 20071001, end: 20071101
  2. CHANTIX [Suspect]
     Indication: SMOKING CESSATION THERAPY
     Dosage: STARTER PACK
     Route: 048
     Dates: start: 20071001, end: 20081001
  3. NEXIUM [Concomitant]
     Indication: DYSPHAGIA
     Dosage: UNK
     Dates: start: 20071001
  4. NEXIUM [Concomitant]
     Indication: REFLUX GASTRITIS

REACTIONS (7)
  - PANIC ATTACK [None]
  - DEPRESSION [None]
  - ANXIETY [None]
  - AGGRESSION [None]
  - SUICIDAL BEHAVIOUR [None]
  - HOSTILITY [None]
  - MENTAL DISORDER [None]
